FAERS Safety Report 21238410 (Version 1)
Quarter: 2022Q3

REPORT INFORMATION
  Report Type: Spontaneous
  Country: US (occurrence: None)
  Receive Date: 20220822
  Receipt Date: 20220822
  Transmission Date: 20221027
  Serious: Yes (Other)
  Sender: FDA-Public Use
  Company Number: None

PATIENT
  Age: 48 Year
  Sex: Female
  Weight: 99.79 kg

DRUGS (4)
  1. LAGEVRIO [Suspect]
     Active Substance: MOLNUPIRAVIR
  2. VYVANSE [Concomitant]
     Active Substance: LISDEXAMFETAMINE DIMESYLATE
  3. GEMTESA [Concomitant]
     Active Substance: VIBEGRON
  4. new pill for migraine [Concomitant]

REACTIONS (12)
  - Fatigue [None]
  - Pain in extremity [None]
  - Insomnia [None]
  - Restless legs syndrome [None]
  - Papule [None]
  - Faecal volume increased [None]
  - Diarrhoea [None]
  - Decreased appetite [None]
  - Pruritus [None]
  - Nausea [None]
  - Feeling abnormal [None]
  - Chest pain [None]

NARRATIVE: CASE EVENT DATE: 20220821
